FAERS Safety Report 5464736-6 (Version None)
Quarter: 2007Q3

REPORT INFORMATION
  Report Type: 
  Country: None (occurrence: None)
  Receive Date: 20070820
  Receipt Date: 20070626
  Transmission Date: 20080115
  Serious: No
  Sender: FDA-Public Use
  Company Number: TPA2007A00647

PATIENT
  Age: 42 Year
  Sex: Male
  Weight: 70.3075 kg

DRUGS (4)
  1. ROZEREM [Suspect]
     Indication: INSOMNIA
     Dosage: 8 MG, QHS, PER ORAL
     Route: 048
     Dates: start: 20070214, end: 20070215
  2. ROZEREM [Suspect]
     Indication: INSOMNIA
     Dosage: 8 MG, QHS, PER ORAL
     Route: 048
     Dates: start: 20070216, end: 20070217
  3. ROZEREM [Suspect]
     Indication: INSOMNIA
     Dosage: 8 MG, QHS, PER ORAL
     Route: 048
     Dates: start: 20070305, end: 20070306
  4. UNSPECIFIED VITAMINS (VITAMINS NOS) [Concomitant]

REACTIONS (4)
  - DRUG INEFFECTIVE [None]
  - EPISTAXIS [None]
  - INITIAL INSOMNIA [None]
  - SINUS CONGESTION [None]
